FAERS Safety Report 7601480-0 (Version None)
Quarter: 2011Q3

REPORT INFORMATION
  Report Type: 
  Country: None (occurrence: None)
  Receive Date: 20110711
  Receipt Date: 20110706
  Transmission Date: 20111222
  Serious: No
  Sender: FDA-Public Use
  Company Number: US-TEVA-289627USA

PATIENT
  Sex: Female
  Weight: 56.75 kg

DRUGS (2)
  1. LEVONORGESTREL [Suspect]
     Indication: POST COITAL CONTRACEPTION
     Route: 048
     Dates: start: 20110704, end: 20110705
  2. PLAN B ONE-STEP [Suspect]
     Indication: POST COITAL CONTRACEPTION
     Dosage: 1.5 MILLIGRAM;
     Route: 048
     Dates: start: 20110705, end: 20110705

REACTIONS (6)
  - ERUCTATION [None]
  - VOMITING [None]
  - FLATULENCE [None]
  - NAUSEA [None]
  - DIARRHOEA [None]
  - ABDOMINAL DISCOMFORT [None]
